FAERS Safety Report 20911233 (Version 1)
Quarter: 2022Q2

REPORT INFORMATION
  Report Type: Spontaneous
  Country: JP (occurrence: JP)
  Receive Date: 20220603
  Receipt Date: 20220603
  Transmission Date: 20220720
  Serious: Yes (Other)
  Sender: FDA-Public Use
  Company Number: JP-BAYER-2022A078143

PATIENT
  Age: 20 Year
  Sex: Male

DRUGS (4)
  1. RIVAROXABAN [Interacting]
     Active Substance: RIVAROXABAN
     Indication: Product used for unknown indication
     Dosage: DAILY DOSE 30 MG
     Route: 048
  2. RIVAROXABAN [Interacting]
     Active Substance: RIVAROXABAN
     Dosage: DAILY DOSE 15 MG
     Route: 048
  3. LIALDA [Interacting]
     Active Substance: MESALAMINE
     Indication: Colitis ulcerative
     Dosage: UNK
  4. BUDESONIDE [Concomitant]
     Active Substance: BUDESONIDE
     Indication: Colitis ulcerative

REACTIONS (2)
  - Haematochezia [Unknown]
  - Labelled drug-drug interaction medication error [Unknown]
